FAERS Safety Report 8033852-7 (Version None)
Quarter: 2012Q1

REPORT INFORMATION
  Report Type: 
  Country: None (occurrence: None)
  Receive Date: 20120110
  Receipt Date: 20120106
  Transmission Date: 20120608
  Serious: Yes (Other)
  Sender: FDA-Public Use
  Company Number: US-PFIZER INC-2009262098

PATIENT
  Sex: Male

DRUGS (1)
  1. CHANTIX [Suspect]
     Indication: SMOKING CESSATION THERAPY
     Dosage: UNK
     Route: 048
     Dates: start: 20070828, end: 20071101

REACTIONS (7)
  - ANGER [None]
  - SUICIDE ATTEMPT [None]
  - ANXIETY [None]
  - MOOD SWINGS [None]
  - SUICIDAL IDEATION [None]
  - DEPRESSION [None]
  - AGGRESSION [None]
